FAERS Safety Report 9265412 (Version 1)
Quarter: 2013Q2

REPORT INFORMATION
  Report Type: Other
  Country: US (occurrence: US)
  Receive Date: 20130501
  Receipt Date: 20130501
  Transmission Date: 20140414
  Serious: Yes (Hospitalization, Other)
  Sender: FDA-Public Use
  Company Number: US-VERTEX PHARMACEUTICALS INC-2013-005522

PATIENT
  Age: 59 Year
  Sex: Male
  Weight: 72 kg

DRUGS (7)
  1. INCIVEK [Suspect]
     Indication: HEPATITIS C
     Dosage: 750 MG, TID
     Route: 048
     Dates: start: 20120622, end: 20120627
  2. PEGINTERFERON [Suspect]
     Indication: HEPATITIS C
     Dosage: UNK
  3. RIBAVIRIN [Suspect]
     Indication: HEPATITIS C
  4. LOSARTAN [Concomitant]
     Dosage: 50 MG, QD
  5. TRIAMTERENE AND HYDROCHLOROTHIAZIDE [Concomitant]
     Dosage: 37.5/25 MG DAILY
  6. METOPROLOL TARTRATE [Concomitant]
     Dosage: 12.5 MG, BID
  7. MELOXICAM [Concomitant]
     Dosage: 15 MG, QD

REACTIONS (6)
  - Urate nephropathy [Unknown]
  - Blood creatinine increased [Unknown]
  - Blood uric acid increased [Unknown]
  - Fatigue [Recovered/Resolved]
  - Vomiting [Unknown]
  - Nausea [Recovered/Resolved]
